FAERS Safety Report 7477117-0 (Version None)
Quarter: 2011Q2

REPORT INFORMATION
  Report Type: 
  Country: None (occurrence: None)
  Receive Date: 20110512
  Receipt Date: 20110124
  Transmission Date: 20111010
  Serious: No
  Sender: FDA-Public Use
  Company Number: US-NOVEN-11US001643

PATIENT
  Sex: Female

DRUGS (4)
  1. DAYTRANA [Suspect]
     Indication: PRODUCT USED FOR UNKNOWN INDICATION
     Dosage: 2 30 MG PATCHES DAILY
     Route: 062
     Dates: start: 20100101
  2. INTUNIV [Concomitant]
     Indication: PRODUCT USED FOR UNKNOWN INDICATION
     Dosage: UNK
     Route: 048
  3. DAYTRANA [Suspect]
     Dosage: UNK
     Dates: start: 20070101, end: 20100901
  4. DAYTRANA [Suspect]
     Dosage: UNK
     Dates: start: 20070101, end: 20100901

REACTIONS (6)
  - WRONG TECHNIQUE IN DRUG USAGE PROCESS [None]
  - LOGORRHOEA [None]
  - INCORRECT DRUG ADMINISTRATION DURATION [None]
  - ABNORMAL BEHAVIOUR [None]
  - PRODUCT QUALITY ISSUE [None]
  - DRUG INEFFECTIVE [None]
